FAERS Safety Report 16152328 (Version 1)
Quarter: 2019Q2

REPORT INFORMATION
  Report Type: Spontaneous
  Country: US (occurrence: US)
  Receive Date: 20190402
  Receipt Date: 20190402
  Transmission Date: 20190713
  Serious: Yes (Life-Threatening, Hospitalization, Disabling)
  Sender: FDA-Public Use
  Company Number: None

PATIENT
  Age: 60 Year
  Sex: Male

DRUGS (4)
  1. METHYLENE BLUE. [Suspect]
     Active Substance: METHYLENE BLUE
  2. VITAMIN C [Suspect]
     Active Substance: ASCORBIC ACID
  3. OZONE [Suspect]
     Active Substance: OZONE
  4. OZONE [Suspect]
     Active Substance: OZONE

REACTIONS (3)
  - Metastatic squamous cell carcinoma [None]
  - Malignant neoplasm progression [None]
  - Tumour ulceration [None]

NARRATIVE: CASE EVENT DATE: 20190401
